FAERS Safety Report 21365450 (Version 8)
Quarter: 2022Q4

REPORT INFORMATION
  Report Type: Report from Study
  Country: CN (occurrence: CN)
  Receive Date: 20220922
  Receipt Date: 20221213
  Transmission Date: 20230112
  Serious: Yes (Life-Threatening, Hospitalization, Other)
  Sender: FDA-Public Use
  Company Number: CN-BRISTOL-MYERS SQUIBB COMPANY-2022-108380

PATIENT
  Age: 68 Year
  Sex: Male
  Weight: 70 kg

DRUGS (42)
  1. IPILIMUMAB [Suspect]
     Active Substance: IPILIMUMAB
     Indication: Hepatocellular carcinoma
     Route: 042
     Dates: start: 20220708, end: 20220914
  2. INSULIN ASPART [Concomitant]
     Active Substance: INSULIN ASPART
     Indication: Product used for unknown indication
     Dosage: DOSE: 8 UNITS
     Route: 058
     Dates: start: 202111, end: 20220920
  3. PREDNISONE ACETATE [Concomitant]
     Active Substance: PREDNISONE ACETATE
     Indication: Rash
     Route: 048
     Dates: start: 20220909
  4. PREDNISONE ACETATE [Concomitant]
     Active Substance: PREDNISONE ACETATE
     Route: 048
     Dates: start: 20220822, end: 20220902
  5. PREDNISONE ACETATE [Concomitant]
     Active Substance: PREDNISONE ACETATE
     Route: 048
     Dates: start: 20220903, end: 20220910
  6. PREDNISONE ACETATE [Concomitant]
     Active Substance: PREDNISONE ACETATE
     Route: 048
     Dates: start: 20220911, end: 20220914
  7. INSULIN GLARGINE [Concomitant]
     Active Substance: INSULIN GLARGINE
     Indication: Product used for unknown indication
     Dosage: 14 UNITS
     Route: 058
     Dates: start: 202111, end: 20220920
  8. NIFEDIPINE [Concomitant]
     Active Substance: NIFEDIPINE
     Indication: Product used for unknown indication
     Route: 048
     Dates: start: 202111, end: 20220929
  9. METOPROLOL TARTRATE [Concomitant]
     Active Substance: METOPROLOL TARTRATE
     Indication: Product used for unknown indication
     Route: 048
     Dates: start: 202111, end: 20220915
  10. OXYCODONE HYDROCHLORIDE [Concomitant]
     Active Substance: OXYCODONE HYDROCHLORIDE
     Indication: Product used for unknown indication
     Route: 048
     Dates: start: 20220625, end: 20221024
  11. LEVOCETIRIZINE DIHYDROCHLORIDE [Concomitant]
     Active Substance: LEVOCETIRIZINE DIHYDROCHLORIDE
     Indication: Rash
     Route: 048
     Dates: start: 20220711, end: 20220902
  12. HERBALS\DIAMMONIUM GLYCYRRHIZINATE [Concomitant]
     Active Substance: HERBALS\DIAMMONIUM GLYCYRRHIZINATE
     Indication: Alanine aminotransferase increased
     Dosage: ENTERIC COATED CAPSULE
     Route: 048
     Dates: start: 20220826, end: 20220914
  13. SPIRONOLACTONE [Concomitant]
     Active Substance: SPIRONOLACTONE
     Indication: Ascites
     Route: 048
     Dates: start: 20220923, end: 20221104
  14. SPIRONOLACTONE [Concomitant]
     Active Substance: SPIRONOLACTONE
     Route: 048
     Dates: start: 20220719, end: 20220914
  15. DIGOXIN [Concomitant]
     Active Substance: DIGOXIN
     Indication: Supraventricular tachycardia
     Route: 048
     Dates: start: 20220918, end: 20221027
  16. ALBUMIN HUMAN [Concomitant]
     Active Substance: ALBUMIN HUMAN
     Indication: Hypoalbuminaemia
     Route: 042
     Dates: start: 20221017, end: 20221017
  17. ALBUMIN HUMAN [Concomitant]
     Active Substance: ALBUMIN HUMAN
     Route: 042
     Dates: start: 20221011, end: 20221011
  18. GLUTATHIONE [Concomitant]
     Active Substance: GLUTATHIONE
     Indication: Alanine aminotransferase increased
     Route: 042
     Dates: start: 20220928, end: 20221018
  19. TIOPRONIN [Concomitant]
     Active Substance: TIOPRONIN
     Indication: Aspartate aminotransferase increased
     Route: 042
     Dates: start: 20220928, end: 20221024
  20. LANSOPRAZOLE [Concomitant]
     Active Substance: LANSOPRAZOLE
     Indication: Product used for unknown indication
     Route: 042
     Dates: start: 20220917, end: 20221104
  21. CALCIUM CARBONATE D3 [Concomitant]
     Indication: Product used for unknown indication
     Route: 048
     Dates: start: 20220924
  22. GLYCERIN [Concomitant]
     Active Substance: GLYCERIN
     Indication: Constipation
     Dosage: DOSE: 120 UNITS NOT PROVIDED
     Route: 054
     Dates: start: 20221006, end: 20221006
  23. COENZYME Q10 [Concomitant]
     Active Substance: DIETARY SUPPLEMENT\UBIDECARENONE
     Indication: Product used for unknown indication
     Route: 048
     Dates: start: 20220921, end: 20221104
  24. VERAPAMIL [Concomitant]
     Active Substance: VERAPAMIL HYDROCHLORIDE
     Indication: Supraventricular tachycardia
     Route: 042
     Dates: start: 20220919, end: 20220920
  25. DESLANOSIDE [Concomitant]
     Active Substance: DESLANOSIDE
     Indication: Supraventricular tachycardia
     Route: 042
     Dates: start: 20220920, end: 20220920
  26. POTASSIUM CHLORIDE [Concomitant]
     Active Substance: POTASSIUM CHLORIDE
     Indication: Hyponatraemia
     Route: 048
     Dates: start: 20220920, end: 20220921
  27. CALCIUM GLUCONATE [Concomitant]
     Active Substance: CALCIUM GLUCONATE
     Indication: Hypocalcaemia
     Route: 042
     Dates: start: 20220921, end: 20220921
  28. CALCIUM GLUCONATE [Concomitant]
     Active Substance: CALCIUM GLUCONATE
     Route: 042
     Dates: start: 20220922, end: 20221002
  29. CALCIUM GLUCONATE [Concomitant]
     Active Substance: CALCIUM GLUCONATE
     Route: 042
     Dates: start: 20220920, end: 20220920
  30. COMPOUND AMINO ACID INJECTION (6AA) [Concomitant]
     Indication: Product used for unknown indication
     Dosage: DOSE 500 UNITS NOT PROVIDED
     Route: 042
     Dates: start: 20220920, end: 20220920
  31. COMPOUND AMINO ACID INJECTION (6AA) [Concomitant]
     Dosage: DOSE 250 UNITS NOT PROVIDED
     Route: 042
     Dates: start: 20220917, end: 20220919
  32. ELECTROLYTES NOS [Concomitant]
     Active Substance: ELECTROLYTES NOS
     Indication: Product used for unknown indication
     Dosage: DOSE 500 UNITS NOT PROVIDED
     Route: 042
     Dates: start: 20221003, end: 20221003
  33. ELECTROLYTES NOS [Concomitant]
     Active Substance: ELECTROLYTES NOS
     Dosage: DOSE 500 UNITS NOT PROVIDED
     Route: 042
     Dates: start: 20220919, end: 20220919
  34. ELECTROLYTES NOS [Concomitant]
     Active Substance: ELECTROLYTES NOS
     Dosage: DOSE 500 UNITS NOT PROVIDED
     Route: 042
     Dates: start: 20220921, end: 20220921
  35. VITAMIN C [Concomitant]
     Active Substance: ASCORBIC ACID
     Indication: Product used for unknown indication
     Route: 042
     Dates: start: 20220920, end: 20220920
  36. VITAMIN C [Concomitant]
     Active Substance: ASCORBIC ACID
     Route: 042
     Dates: start: 20220921, end: 20220921
  37. VITAMIN C [Concomitant]
     Active Substance: ASCORBIC ACID
     Route: 042
     Dates: start: 20220922, end: 20220927
  38. VITAMIN C [Concomitant]
     Active Substance: ASCORBIC ACID
     Route: 042
     Dates: start: 20221020, end: 20221023
  39. VITAMIN B6 [Concomitant]
     Active Substance: PYRIDOXINE HYDROCHLORIDE
     Indication: Product used for unknown indication
     Route: 042
     Dates: start: 20221020, end: 20221023
  40. VITAMIN B6 [Concomitant]
     Active Substance: PYRIDOXINE HYDROCHLORIDE
     Route: 042
     Dates: start: 20220920, end: 20220920
  41. VITAMIN B6 [Concomitant]
     Active Substance: PYRIDOXINE HYDROCHLORIDE
     Route: 042
     Dates: start: 20220921, end: 20220921
  42. VITAMIN B6 [Concomitant]
     Active Substance: PYRIDOXINE HYDROCHLORIDE
     Route: 042
     Dates: start: 20220922, end: 20220927

REACTIONS (4)
  - Immune-mediated lung disease [Not Recovered/Not Resolved]
  - Embolism [Not Recovered/Not Resolved]
  - Bacteraemia [Recovered/Resolved]
  - Tumour haemorrhage [Recovered/Resolved]

NARRATIVE: CASE EVENT DATE: 20220915
